FAERS Safety Report 11875111 (Version 1)
Quarter: 2015Q4

REPORT INFORMATION
  Report Type: Spontaneous
  Country: FR (occurrence: FR)
  Receive Date: 20151229
  Receipt Date: 20151229
  Transmission Date: 20160305
  Serious: Yes (Hospitalization)
  Sender: FDA-Public Use
  Company Number: FR-SA-2015SA217197

PATIENT
  Age: 85 Year
  Sex: Male

DRUGS (5)
  1. CLOXACILLIN [Concomitant]
     Active Substance: CLOXACILLIN
     Route: 042
     Dates: start: 20151003, end: 20151028
  2. RIFADIN [Suspect]
     Active Substance: RIFAMPIN
     Indication: SEPTIC ARTHRITIS STAPHYLOCOCCAL
     Dosage: 2DAYS
     Route: 048
     Dates: start: 20151028, end: 20151120
  3. FUCIDIN [Suspect]
     Active Substance: FUSIDIC ACID
     Dosage: 3 DAYS, 2 DF
     Route: 048
     Dates: start: 20151028, end: 20151120
  4. TAHOR [Concomitant]
     Active Substance: ATORVASTATIN CALCIUM
  5. MICARDIS [Concomitant]
     Active Substance: TELMISARTAN

REACTIONS (1)
  - Drug reaction with eosinophilia and systemic symptoms [Not Recovered/Not Resolved]

NARRATIVE: CASE EVENT DATE: 20151113
